FAERS Safety Report 6213025-0 (Version None)
Quarter: 2009Q2

REPORT INFORMATION
  Report Type: 
  Country: None (occurrence: None)
  Receive Date: 20090603
  Receipt Date: 20090526
  Transmission Date: 20091009
  Serious: Yes (Hospitalization)
  Sender: FDA-Public Use
  Company Number: A0779257A

PATIENT
  Age: 46 Year
  Sex: Female
  Weight: 180.9 kg

DRUGS (8)
  1. AVANDIA [Suspect]
     Indication: DIABETES MELLITUS
     Dosage: 4MG TWICE PER DAY
     Route: 048
     Dates: start: 20000101, end: 20041001
  2. ACTOS [Concomitant]
  3. GLUCOPHAGE [Concomitant]
  4. INSULIN [Concomitant]
  5. GLUCOTROL XL [Concomitant]
  6. PREDNISONE [Concomitant]
  7. WELLBUTRIN [Concomitant]
  8. VIOXX [Concomitant]

REACTIONS (3)
  - CARDIAC FAILURE CONGESTIVE [None]
  - CEREBROVASCULAR ACCIDENT [None]
  - MYOCARDIAL INFARCTION [None]
